FAERS Safety Report 4358665-9 (Version None)
Quarter: 2004Q2

REPORT INFORMATION
  Report Type: 
  Country: None (occurrence: None)
  Receive Date: 20040511
  Receipt Date: 20040427
  Transmission Date: 20050107
  Serious: Yes (Other)
  Sender: FDA-Public Use
  Company Number: 2004-BP-03270BP

PATIENT
  Age: 53 Year
  Sex: Male

DRUGS (3)
  1. MIRAPEX [Suspect]
     Indication: PARKINSON'S DISEASE
     Dosage: 4.5 MG (NR), PO
     Route: 048
     Dates: start: 20020101, end: 20040401
  2. LEVODOPA (LEVODOPA) [Concomitant]
  3. COMTAN [Concomitant]

REACTIONS (1)
  - GAMBLING [None]
